FAERS Safety Report 16856521 (Version 1)
Quarter: 2019Q3

REPORT INFORMATION
  Report Type: Spontaneous
  Country: IN (occurrence: IN)
  Receive Date: 20190926
  Receipt Date: 20190926
  Transmission Date: 20191005
  Serious: Yes (Hospitalization)
  Sender: FDA-Public Use
  Company Number: IN-BAUSCH-BL-2019-021737

PATIENT
  Age: 47 Year
  Sex: Male

DRUGS (7)
  1. CYCLOPHOSPHAMIDE. [Concomitant]
     Active Substance: CYCLOPHOSPHAMIDE
     Indication: GLOMERULONEPHRITIS MEMBRANOUS
     Dosage: ONE INTRAVENOUS PULSE OF CYCLOPHOSPHAMIDE
     Route: 042
     Dates: start: 2016, end: 2016
  2. TELMISARTAN. [Concomitant]
     Active Substance: TELMISARTAN
     Indication: PRODUCT USED FOR UNKNOWN INDICATION
     Dosage: INTERMITTENTLY
     Dates: start: 2016
  3. DIMAVAL [Concomitant]
     Dosage: TOTAL OF 8G (80 TABLETS) OF DIMAVAL OVER 3 WEEKS
     Route: 048
     Dates: start: 2016, end: 2016
  4. PREDNISOLONE. [Suspect]
     Active Substance: PREDNISOLONE
     Indication: GLOMERULONEPHRITIS MEMBRANOUS
     Route: 048
     Dates: start: 2016, end: 2016
  5. PREDNISOLONE. [Suspect]
     Active Substance: PREDNISOLONE
     Dosage: GIVEN INTERMITTENTLY AND IRREGULARLY AND DISCONTINUED AFTER OVER 3 MONTHS
     Route: 048
     Dates: start: 2016, end: 2016
  6. COUMARIN [Concomitant]
     Active Substance: COUMARIN
     Indication: RENAL VEIN THROMBOSIS
     Route: 048
     Dates: start: 2017, end: 2017
  7. DIMAVAL [Concomitant]
     Indication: CHELATION THERAPY
     Dosage: IN THREE DIVIDED DOSES
     Route: 048
     Dates: start: 2016, end: 2016

REACTIONS (2)
  - Pneumonia viral [Unknown]
  - Cellulitis [Unknown]

NARRATIVE: CASE EVENT DATE: 2016
